FAERS Safety Report 4791438-1 (Version None)
Quarter: 2005Q4

REPORT INFORMATION
  Report Type: 
  Country: None (occurrence: None)
  Receive Date: 20051007
  Receipt Date: 20050517
  Transmission Date: 20060501
  Serious: Yes (Other)
  Sender: FDA-Public Use
  Company Number: US-ROCHE-405193

PATIENT
  Age: 49 Year
  Sex: Male
  Weight: 93 kg

DRUGS (10)
  1. PEGASYS [Suspect]
     Dosage: PATIENT SKIPPED PEGASYS DOSE FOR ONE WEEK IN MARCH 2005.
     Route: 065
     Dates: start: 20050107, end: 20050304
  2. PEGASYS [Suspect]
     Route: 065
     Dates: start: 20050309, end: 20050721
  3. RIBASPHERE [Suspect]
     Dosage: RIBASPHERE WAS REDUCED TO 400 MG DAILY FOR FOUR DAYS IN MARCH,
     Route: 048
     Dates: start: 20050107
  4. RIBASPHERE [Suspect]
     Route: 048
     Dates: start: 20050315
  5. RIBASPHERE [Suspect]
     Route: 048
     Dates: end: 20050721
  6. COPEGUS [Suspect]
     Route: 048
     Dates: start: 20050107
  7. ALDACTONE [Concomitant]
     Dosage: WAS DISCONTINUED WHEN PATIENT RAN OUT OF MEDICATION BUT RESUMED ON 04 MAY 2005.
     Route: 048
     Dates: start: 20040415
  8. GLUCOTROL [Concomitant]
     Dates: start: 20010615
  9. NORVASC [Concomitant]
     Dates: start: 20010615
  10. LISINOPRIL [Concomitant]

REACTIONS (8)
  - ANAEMIA [None]
  - ARTHRALGIA [None]
  - ASCITES [None]
  - DYSKINESIA [None]
  - INSOMNIA [None]
  - MUSCLE SPASMS [None]
  - NOCTURIA [None]
  - WHITE BLOOD CELL COUNT DECREASED [None]
